FAERS Safety Report 5369846-X (Version None)
Quarter: 2007Q2

REPORT INFORMATION
  Report Type: 
  Country: None (occurrence: None)
  Receive Date: 20070621
  Receipt Date: 20070612
  Transmission Date: 20071010
  Serious: Yes (Hospitalization)
  Sender: FDA-Public Use
  Company Number: FABR-12035

PATIENT
  Age: 23 Year
  Sex: Male
  Weight: 80 kg

DRUGS (3)
  1. FABRAZYME [Suspect]
     Indication: FABRY'S DISEASE
     Dosage: 1 MG/KG Q2WKS IV
     Route: 042
     Dates: start: 20070411
  2. POLARAMINE [Concomitant]
  3. PERFALGAN [Concomitant]

REACTIONS (5)
  - BODY TEMPERATURE INCREASED [None]
  - CHILLS [None]
  - OXYGEN SATURATION DECREASED [None]
  - THIRST [None]
  - VASOCONSTRICTION [None]
